FAERS Safety Report 4323205-7 (Version None)
Quarter: 2004Q1

REPORT INFORMATION
  Report Type: 
  Country: None (occurrence: None)
  Receive Date: 20040324
  Receipt Date: 20040324
  Transmission Date: 20041129
  Serious: Yes (Other)
  Sender: FDA-Public Use
  Company Number: None

PATIENT
  Age: 29 Year
  Sex: Male
  Weight: 74.8435 kg

DRUGS (5)
  1. LEXAPRO [Suspect]
     Indication: ANXIETY
     Dosage: 10 MG DAILY ORAL
     Route: 048
     Dates: start: 20031202, end: 20040113
  2. LEXAPRO [Suspect]
     Indication: MAJOR DEPRESSION
     Dosage: 10 MG DAILY ORAL
     Route: 048
     Dates: start: 20031202, end: 20040113
  3. LEXAPRO [Suspect]
     Indication: ANXIETY
     Dosage: 15 MG, 20 MG DAILY ORAL
     Route: 048
     Dates: start: 20040113, end: 20040224
  4. LEXAPRO [Suspect]
     Indication: MAJOR DEPRESSION
     Dosage: 15 MG, 20 MG DAILY ORAL
     Route: 048
     Dates: start: 20040113, end: 20040224
  5. ADDERALL 10 [Concomitant]

REACTIONS (13)
  - ABDOMINAL PAIN UPPER [None]
  - ANGER [None]
  - ANXIETY [None]
  - APATHY [None]
  - CONDITION AGGRAVATED [None]
  - DEPRESSION [None]
  - DIARRHOEA [None]
  - DISTURBANCE IN ATTENTION [None]
  - FATIGUE [None]
  - FEELING ABNORMAL [None]
  - IRRITABILITY [None]
  - NAUSEA [None]
  - STRESS SYMPTOMS [None]
